FAERS Safety Report 13543832 (Version 1)
Quarter: 2017Q2

REPORT INFORMATION
  Report Type: Report from Study
  Country: None (occurrence: US)
  Receive Date: 20170515
  Receipt Date: 20170515
  Transmission Date: 20170830
  Serious: Yes (Hospitalization, Other)
  Sender: FDA-Public Use
  Company Number: US-ABBVIE-17K-163-1917199-00

PATIENT
  Age: 71 Year
  Sex: Female
  Weight: 48.58 kg

DRUGS (6)
  1. 6 MP [Suspect]
     Active Substance: MERCAPTOPURINE
     Indication: COLITIS
     Route: 065
  2. HUMIRA [Suspect]
     Active Substance: ADALIMUMAB
     Indication: COLITIS ULCERATIVE
     Route: 058
     Dates: start: 201607
  3. PREDNISONE. [Concomitant]
     Active Substance: PREDNISONE
     Indication: GASTROINTESTINAL DISORDER
  4. CIMETIDINE [Concomitant]
     Active Substance: CIMETIDINE
     Indication: GASTROOESOPHAGEAL REFLUX DISEASE
  5. METOPROLOL. [Concomitant]
     Active Substance: METOPROLOL
     Indication: HYPERTENSION
  6. OXAZEPAM. [Concomitant]
     Active Substance: OXAZEPAM
     Indication: DEPRESSION

REACTIONS (28)
  - Chest pain [Recovered/Resolved with Sequelae]
  - Gingival bleeding [Not Recovered/Not Resolved]
  - Insomnia [Not Recovered/Not Resolved]
  - Electrocardiogram abnormal [Unknown]
  - Abdominal distension [Not Recovered/Not Resolved]
  - Large intestinal ulcer [Recovered/Resolved]
  - Haemoglobin decreased [Recovered/Resolved]
  - Alopecia [Not Recovered/Not Resolved]
  - Hypertension [Recovered/Resolved with Sequelae]
  - Dizziness [Not Recovered/Not Resolved]
  - Memory impairment [Not Recovered/Not Resolved]
  - Diarrhoea [Recovered/Resolved]
  - Dry mouth [Not Recovered/Not Resolved]
  - Nausea [Not Recovered/Not Resolved]
  - Oesophageal infection [Recovered/Resolved]
  - Rectal haemorrhage [Recovered/Resolved]
  - Fatigue [Not Recovered/Not Resolved]
  - Onychoclasis [Not Recovered/Not Resolved]
  - Myalgia [Not Recovered/Not Resolved]
  - Pain [Not Recovered/Not Resolved]
  - Dehydration [Recovered/Resolved]
  - Epistaxis [Not Recovered/Not Resolved]
  - Vision blurred [Not Recovered/Not Resolved]
  - Haemoglobin decreased [Recovered/Resolved]
  - Rectal haemorrhage [Recovered/Resolved]
  - Dehydration [Recovered/Resolved]
  - Thirst [Not Recovered/Not Resolved]
  - Dyspepsia [Not Recovered/Not Resolved]

NARRATIVE: CASE EVENT DATE: 20160724
